FAERS Safety Report 5580207-0 (Version None)
Quarter: 2008Q1

REPORT INFORMATION
  Report Type: 
  Country: None (occurrence: None)
  Receive Date: 20080103
  Receipt Date: 20071227
  Transmission Date: 20080703
  Serious: Yes (Hospitalization, Other)
  Sender: FDA-Public Use
  Company Number: JP-ALLERGAN-0709920US

PATIENT
  Sex: Female

DRUGS (2)
  1. BOTOX [Suspect]
     Indication: MUSCLE SPASTICITY
     Dosage: 4 ML, SINGLE
     Route: 030
     Dates: start: 20070824, end: 20070824
  2. BOTOX [Suspect]
     Indication: MUSCLE SPASTICITY
     Dosage: 4 ML, SINGLE
     Route: 030
     Dates: start: 20070824, end: 20070824

REACTIONS (3)
  - FALL [None]
  - HUMERUS FRACTURE [None]
  - LOWER LIMB FRACTURE [None]
